FAERS Safety Report 15884825 (Version 4)
Quarter: 2020Q1

REPORT INFORMATION
  Report Type: Report from Study
  Country: US (occurrence: US)
  Receive Date: 20190129
  Receipt Date: 20200114
  Transmission Date: 20200409
  Serious: No
  Sender: FDA-Public Use
  Company Number: PHEH2019US004164

PATIENT
  Sex: Female

DRUGS (2)
  1. GILENYA [Suspect]
     Active Substance: FINGOLIMOD HYDROCHLORIDE
     Indication: PRODUCT USED FOR UNKNOWN INDICATION
     Dosage: 0.5 MG, QW (ON MONDAY)
     Route: 048
     Dates: start: 20181003
  2. GILENYA [Suspect]
     Active Substance: FINGOLIMOD HYDROCHLORIDE
     Indication: MULTIPLE SCLEROSIS
     Dosage: 0.5 MG, QW
     Route: 048
     Dates: start: 20181003, end: 201912

REACTIONS (5)
  - Lymphocyte count decreased [Unknown]
  - Bladder disorder [Unknown]
  - Dizziness [Unknown]
  - Prescribed underdose [Unknown]
  - Malaise [Unknown]
